FAERS Safety Report 17963413 (Version 1)
Quarter: 2020Q2

REPORT INFORMATION
  Report Type: Spontaneous
  Country: US (occurrence: US)
  Receive Date: 20200630
  Receipt Date: 20200630
  Transmission Date: 20200714
  Serious: No
  Sender: FDA-Public Use
  Company Number: US-JNJFOC-20200638506

PATIENT
  Sex: Male
  Weight: 170 kg

DRUGS (2)
  1. XARELTO [Suspect]
     Active Substance: RIVAROXABAN
     Indication: PRODUCT USED FOR UNKNOWN INDICATION
     Route: 048
     Dates: start: 2018
  2. LITHIUM. [Concomitant]
     Active Substance: LITHIUM
     Indication: PROSTATE CANCER

REACTIONS (1)
  - Back pain [Unknown]
